FAERS Safety Report 15639173 (Version 1)
Quarter: 2018Q4

REPORT INFORMATION
  Report Type: Spontaneous
  Country: US (occurrence: US)
  Receive Date: 20181120
  Receipt Date: 20181120
  Transmission Date: 20190205
  Serious: No
  Sender: FDA-Public Use
  Company Number: US-JNJFOC-20180235085

PATIENT
  Sex: Male

DRUGS (22)
  1. ALBUTEROL. [Concomitant]
     Active Substance: ALBUTEROL
  2. LOTENSIN [Concomitant]
     Active Substance: BENAZEPRIL HYDROCHLORIDE
  3. SYNTHROID [Concomitant]
     Active Substance: LEVOTHYROXINE SODIUM
  4. METOPROLOL. [Concomitant]
     Active Substance: METOPROLOL
  5. MYRBETRIQ [Concomitant]
     Active Substance: MIRABEGRON
  6. CLONIDINE. [Concomitant]
     Active Substance: CLONIDINE
  7. FINASTERIDE. [Concomitant]
     Active Substance: FINASTERIDE
  8. LOVASTATIN. [Concomitant]
     Active Substance: LOVASTATIN
  9. POTASSIUM CHLORIDE. [Concomitant]
     Active Substance: POTASSIUM CHLORIDE
  10. AUGMENTIN [Concomitant]
     Active Substance: AMOXICILLIN\CLAVULANATE POTASSIUM
  11. TAMSULOSIN [Concomitant]
     Active Substance: TAMSULOSIN
  12. IMBRUVICA [Suspect]
     Active Substance: IBRUTINIB
     Indication: PRODUCT USED FOR UNKNOWN INDICATION
     Route: 048
     Dates: end: 20180202
  13. ALLOPURINOL. [Concomitant]
     Active Substance: ALLOPURINOL
  14. OXYBUTYNIN. [Concomitant]
     Active Substance: OXYBUTYNIN CHLORIDE
  15. AMLODIPINE [Concomitant]
     Active Substance: AMLODIPINE BESYLATE
  16. ASPIRIN. [Concomitant]
     Active Substance: ASPIRIN
  17. BUMETANIDE. [Concomitant]
     Active Substance: BUMETANIDE
  18. GLIPIZIDE. [Concomitant]
     Active Substance: GLIPIZIDE
  19. LANTUS [Concomitant]
     Active Substance: INSULIN GLARGINE
  20. WARFARIN [Concomitant]
     Active Substance: WARFARIN
  21. ISOSORBIDE MONONITRATE. [Concomitant]
     Active Substance: ISOSORBIDE MONONITRATE
  22. NIACIN. [Concomitant]
     Active Substance: NIACIN

REACTIONS (2)
  - Drug hypersensitivity [Unknown]
  - Adverse drug reaction [Unknown]
